FAERS Safety Report 8799615 (Version 1)
Quarter: 2012Q4

REPORT INFORMATION
  Report Type: Report from Study
  Country: CA (occurrence: CA)
  Receive Date: 20120919
  Receipt Date: 20120919
  Transmission Date: 20130627
  Serious: Yes (Other)
  Sender: FDA-Public Use
  Company Number: CA-JNJFOC-20120903960

PATIENT
  Age: 62 Year
  Sex: Female
  Weight: 131.6 kg

DRUGS (8)
  1. REMICADE [Suspect]
     Indication: PSORIATIC ARTHROPATHY
     Route: 042
     Dates: start: 20110321
  2. SPIRIVA [Concomitant]
     Route: 065
  3. SYMBICORT [Concomitant]
     Route: 065
  4. BRICANYL [Concomitant]
     Route: 065
  5. AVALIDE [Concomitant]
     Route: 065
  6. PANTOLOC [Concomitant]
     Route: 065
  7. DOVOBET [Concomitant]
     Route: 065
  8. TYLENOL [Concomitant]
     Route: 065

REACTIONS (1)
  - Depression [Recovered/Resolved]
